FAERS Safety Report 9735323 (Version 1)
Quarter: 2013Q4

REPORT INFORMATION
  Report Type: Spontaneous
  Country: US (occurrence: US)
  Receive Date: 20131206
  Receipt Date: 20131206
  Transmission Date: 20140711
  Serious: No
  Sender: FDA-Public Use
  Company Number: US-009507513-1312USA002241

PATIENT
  Sex: Female

DRUGS (2)
  1. VYTORIN [Suspect]
     Route: 048
  2. LIPTRUZET [Suspect]
     Indication: BLOOD CHOLESTEROL INCREASED
     Dosage: UNK
     Route: 048
     Dates: end: 20131204

REACTIONS (1)
  - Myalgia [Unknown]
